FAERS Safety Report 8328690-1 (Version None)
Quarter: 2012Q2

REPORT INFORMATION
  Report Type: 
  Country: None (occurrence: None)
  Receive Date: 20120502
  Receipt Date: 20120427
  Transmission Date: 20120825
  Serious: Yes (Death)
  Sender: FDA-Public Use
  Company Number: US-CELGENEUS-163-21880-12043147

PATIENT
  Sex: Female
  Weight: 87.622 kg

DRUGS (18)
  1. FUROSEMIDE [Concomitant]
     Dosage: 20 MILLIGRAM
     Route: 048
  2. REVLIMID [Suspect]
     Indication: DIFFUSE LARGE B-CELL LYMPHOMA
     Dosage: 15 MILLIGRAM
     Route: 048
     Dates: start: 20111130, end: 20120417
  3. INSULIN GLARGINE [Concomitant]
     Dosage: 6 UN
     Route: 058
  4. PREDNISONE [Concomitant]
     Dosage: 10 MILLIGRAM
     Route: 048
  5. WARFARIN SODIUM [Concomitant]
     Dosage: 7.5 MILLIGRAM
     Route: 048
  6. LORTAB [Concomitant]
     Indication: PAIN
     Dosage: 5MG-500MG
     Route: 048
  7. SIMVASTATIN [Concomitant]
     Dosage: 20 MILLIGRAM
     Route: 048
  8. ZOLPIDEM [Concomitant]
     Dosage: 5 MILLIGRAM
     Route: 048
  9. SERTRALINE HYDROCHLORIDE [Concomitant]
     Dosage: 100 MILLIGRAM
     Route: 048
  10. ZOLE [Concomitant]
     Dosage: 20 MILLIGRAM
     Route: 048
  11. POTASSIUM CHLORIDE [Concomitant]
     Dosage: 15 MILLIEQUIVALENTS
     Route: 048
  12. DARIFENACIN [Concomitant]
     Dosage: 15 MILLIGRAM
     Route: 048
  13. PYRIDOSTIGMINE BROMIDE [Concomitant]
     Dosage: 90 MILLIGRAM
     Route: 048
  14. CARVEDILOL [Concomitant]
     Dosage: 6.25 MILLIGRAM
     Route: 048
  15. ONDANSETRON [Concomitant]
     Dosage: 1
     Route: 048
  16. OXYCODONE HCL [Concomitant]
     Dosage: 1
     Route: 048
  17. WARFARIN SODIUM [Concomitant]
     Dosage: 5 MILLIGRAM
     Route: 048
  18. ENOXAPARIN [Concomitant]
     Dosage: 100MG/ML
     Route: 058

REACTIONS (1)
  - DEATH [None]
